FAERS Safety Report 9722408 (Version 1)
Quarter: 2013Q4

REPORT INFORMATION
  Report Type: Spontaneous
  Country: CH (occurrence: CH)
  Receive Date: 20131202
  Receipt Date: 20131202
  Transmission Date: 20140711
  Serious: Yes (Other)
  Sender: FDA-Public Use
  Company Number: PHHY2013CH137372

PATIENT
  Age: 70 Year
  Sex: Male

DRUGS (8)
  1. ZOMETA [Suspect]
     Indication: PLASMA CELL MYELOMA
     Dosage: 4 MG, QMO
     Route: 042
     Dates: start: 2007, end: 2009
  2. ZOMETA [Suspect]
     Dosage: 4 MG, Q3MO
     Route: 042
     Dates: start: 2009, end: 201307
  3. DEXAMETHASONE [Suspect]
     Dosage: UNK UKN, UNK
     Route: 048
  4. THALIDOMIDE PHARMION [Concomitant]
     Route: 048
  5. MAGNESIUM DCI [Concomitant]
     Dosage: 500 MG, QD
     Route: 048
  6. CALCIUM [Concomitant]
  7. OCULAC [Concomitant]
     Indication: MUCOSAL DRYNESS
  8. DESOMEDINE [Concomitant]
     Indication: INFECTION

REACTIONS (1)
  - Osteonecrosis of jaw [Not Recovered/Not Resolved]
